FAERS Safety Report 4645648-4 (Version None)
Quarter: 2005Q2

REPORT INFORMATION
  Report Type: 
  Country: None (occurrence: None)
  Receive Date: 20050331
  Receipt Date: 20041201
  Transmission Date: 20051028
  Serious: No
  Sender: FDA-Public Use
  Company Number: 04P-163-0282525-00

PATIENT
  Sex: Male

DRUGS (3)
  1. HUMIRA [Suspect]
     Dosage: 40 MG, SUBCUTANEOUS
     Route: 058
     Dates: start: 20040501
  2. CLOPIDOGREL BISULFATE [Concomitant]
  3. NAPROXEN [Concomitant]

REACTIONS (1)
  - INFECTION [None]
